FAERS Safety Report 6568935-1 (Version None)
Quarter: 2010Q1

REPORT INFORMATION
  Report Type: 
  Country: None (occurrence: None)
  Receive Date: 20100201
  Receipt Date: 20100201
  Transmission Date: 20100710
  Serious: Yes (Other)
  Sender: FDA-Public Use
  Company Number: None

PATIENT
  Age: 70 Year
  Sex: Female
  Weight: 68.0396 kg

DRUGS (1)
  1. LEVAQUIN [Suspect]
     Indication: URINARY TRACT INFECTION
     Dosage: 500 MG TABLET PO DAILY FOR 1 WEEK P.O.
     Route: 048
     Dates: start: 20091002

REACTIONS (2)
  - DRUG HYPERSENSITIVITY [None]
  - DYSPHONIA [None]
